FAERS Safety Report 11570011 (Version 1)
Quarter: 2015Q3

REPORT INFORMATION
  Report Type: Spontaneous
  Country: US (occurrence: US)
  Receive Date: 20150916
  Receipt Date: 20150916
  Transmission Date: 20151125
  Serious: No
  Sender: FDA-Public Use
  Company Number: US-ELI_LILLY_AND_COMPANY-US200908006604

PATIENT
  Sex: Female

DRUGS (5)
  1. FORTEO [Suspect]
     Active Substance: TERIPARATIDE
     Dosage: UNK
     Dates: start: 20090826
  2. ACYCLOVIR                          /00587301/ [Concomitant]
     Active Substance: ACYCLOVIR
     Dosage: 800 MG, DAILY (1/D)
  3. CALCIUM [Concomitant]
     Active Substance: CALCIUM
  4. WARFARIN [Concomitant]
     Active Substance: WARFARIN
     Dosage: 6 MG, DAILY (1/D)
  5. FOSAMAX [Concomitant]
     Active Substance: ALENDRONATE SODIUM

REACTIONS (4)
  - Myalgia [Unknown]
  - Fatigue [Not Recovered/Not Resolved]
  - Swelling [Unknown]
  - Arthritis [Unknown]

NARRATIVE: CASE EVENT DATE: 2009
